FAERS Safety Report 17684865 (Version 2)
Quarter: 2020Q2

REPORT INFORMATION
  Report Type: Spontaneous
  Country: US (occurrence: US)
  Receive Date: 20200420
  Receipt Date: 20200427
  Transmission Date: 20200714
  Serious: Yes (Other)
  Sender: FDA-Public Use
  Company Number: US-LEXICON PHARMACEUTICALS, INC-20-1606-00296

PATIENT
  Age: 82 Year
  Sex: Male

DRUGS (2)
  1. XERMELO [Suspect]
     Active Substance: TELOTRISTAT ETHYL
     Indication: CARCINOID SYNDROME
     Dosage: UNKNOWN DATES-INVOLVED IN A CLINICAL TRIAL NOS PRIOR TO BIOLOGICS FIRST DISPENSE
  2. XERMELO [Suspect]
     Active Substance: TELOTRISTAT ETHYL
     Dates: start: 20170525

REACTIONS (1)
  - Hepatic embolisation [Recovered/Resolved]

NARRATIVE: CASE EVENT DATE: 202002
